FAERS Safety Report 9647520 (Version 2)
Quarter: 2013Q4

REPORT INFORMATION
  Report Type: Spontaneous
  Country: US (occurrence: US)
  Receive Date: 20131028
  Receipt Date: 20131125
  Transmission Date: 20140711
  Serious: Yes (Other)
  Sender: FDA-Public Use
  Company Number: US-BIOGENIDEC-2013BI102127

PATIENT
  Sex: Male

DRUGS (11)
  1. TECFIDERA [Suspect]
     Indication: MULTIPLE SCLEROSIS
     Route: 048
  2. PRAVACHOL [Concomitant]
  3. COREG [Concomitant]
  4. ALDACTONE [Concomitant]
  5. TRICOR [Concomitant]
  6. AVAPRO [Concomitant]
  7. ASPIRIN EC [Concomitant]
  8. CALCIUM [Concomitant]
  9. FISH OIL [Concomitant]
  10. VITAMIN B-12 [Concomitant]
  11. VITAMIN D3 [Concomitant]

REACTIONS (1)
  - Lung neoplasm malignant [Unknown]
